FAERS Safety Report 23599397 (Version 1)
Quarter: 2024Q1

REPORT INFORMATION
  Report Type: Spontaneous
  Country: IT (occurrence: IT)
  Receive Date: 20240306
  Receipt Date: 20240306
  Transmission Date: 20240410
  Serious: Yes (Other)
  Sender: FDA-Public Use
  Company Number: IT-ORPHANEU-2024001446

PATIENT

DRUGS (2)
  1. ISTURISA [Suspect]
     Active Substance: OSILODROSTAT PHOSPHATE
     Indication: Product used for unknown indication
     Dosage: 4 TABLETS DAY (4 MG)
     Route: 065
     Dates: start: 20230301
  2. ISTURISA [Suspect]
     Active Substance: OSILODROSTAT PHOSPHATE
     Dosage: 3MG PER DAY (2MG MORNING +1MG AFTERNOON)
     Route: 065
     Dates: end: 20230817

REACTIONS (3)
  - Primary adrenal insufficiency [Not Recovered/Not Resolved]
  - Pruritus [Unknown]
  - Therapeutic product effect prolonged [Recovered/Resolved]

NARRATIVE: CASE EVENT DATE: 20230101
